FAERS Safety Report 21478564 (Version 6)
Quarter: 2023Q1

REPORT INFORMATION
  Report Type: Report from Study
  Country: US (occurrence: US)
  Receive Date: 20221019
  Receipt Date: 20230213
  Transmission Date: 20230417
  Serious: No
  Sender: FDA-Public Use
  Company Number: US-NOVARTISTESTPH-NVSC2022US233919

PATIENT
  Sex: Male

DRUGS (1)
  1. KISQALI [Suspect]
     Active Substance: RIBOCICLIB
     Indication: Product used for unknown indication
     Dosage: UNK
     Route: 048

REACTIONS (8)
  - Pleural effusion [Unknown]
  - Weight decreased [Unknown]
  - Electrocardiogram abnormal [Unknown]
  - Neutrophil count decreased [Unknown]
  - Nausea [Unknown]
  - Hepatic enzyme increased [Unknown]
  - Fatigue [Unknown]
  - Product distribution issue [Unknown]
